FAERS Safety Report 23982935 (Version 1)
Quarter: 2024Q2

REPORT INFORMATION
  Report Type: Spontaneous
  Country: AU (occurrence: AU)
  Receive Date: 20240617
  Receipt Date: 20240617
  Transmission Date: 20240716
  Serious: Yes (Other)
  Sender: FDA-Public Use
  Company Number: AU-VERTEX PHARMACEUTICALS-2023-010232

PATIENT

DRUGS (4)
  1. TRIKAFTA [Suspect]
     Active Substance: ELEXACAFTOR\IVACAFTOR\TEZACAFTOR
     Indication: Cystic fibrosis
     Dosage: UNKNOWN DOSAGE REGIMEN
     Route: 048
  2. TRIKAFTA [Suspect]
     Active Substance: ELEXACAFTOR\IVACAFTOR\TEZACAFTOR
     Dosage: PEDIATRIC DOSE
     Route: 048
  3. LIPASE [Concomitant]
     Active Substance: LIPASE
     Dosage: UNKNOWN DOSAGE REGIMEN
  4. LIPASE [Concomitant]
     Active Substance: LIPASE
     Dosage: LOWER DOSE

REACTIONS (7)
  - Suicidal ideation [Unknown]
  - Panic attack [Not Recovered/Not Resolved]
  - Arthropathy [Unknown]
  - Gastrointestinal disorder [Recovering/Resolving]
  - Anxiety [Not Recovered/Not Resolved]
  - Depression [Not Recovered/Not Resolved]
  - Lung disorder [Recovering/Resolving]
